FAERS Safety Report 25640995 (Version 2)
Quarter: 2025Q3

REPORT INFORMATION
  Report Type: Spontaneous
  Country: US (occurrence: US)
  Receive Date: 20250804
  Receipt Date: 20250905
  Transmission Date: 20251021
  Serious: No
  Sender: SANOFI AVENTIS
  Company Number: US-SA-2025SA226896

PATIENT
  Age: 89 Year
  Sex: Male
  Weight: 92.971 kg

DRUGS (4)
  1. DUPIXENT [Suspect]
     Active Substance: DUPILUMAB
     Indication: Dermatitis atopic
     Dosage: 300 MG, QOW
     Route: 058
  2. DUPIXENT [Suspect]
     Active Substance: DUPILUMAB
     Indication: Dermatitis
  3. JAYPIRCA [Concomitant]
     Active Substance: PIRTOBRUTINIB
  4. DOPTELET [Concomitant]
     Active Substance: AVATROMBOPAG MALEATE

REACTIONS (3)
  - Malaise [Unknown]
  - Dermatitis atopic [Unknown]
  - Off label use [Unknown]

NARRATIVE: CASE EVENT DATE: 20250902
